FAERS Safety Report 20367755 (Version 2)
Quarter: 2022Q1

REPORT INFORMATION
  Report Type: Spontaneous
  Country: US (occurrence: US)
  Receive Date: 20220124
  Receipt Date: 20220214
  Transmission Date: 20220423
  Serious: Yes (Other)
  Sender: FDA-Public Use
  Company Number: US-drreddys-SPO/USA/22/0146047

PATIENT
  Age: 81 Year
  Sex: Female

DRUGS (5)
  1. DEXAMETHASONE SODIUM PHOSPHATE [Suspect]
     Active Substance: DEXAMETHASONE SODIUM PHOSPHATE
     Indication: Waldenstrom^s macroglobulinaemia
     Dosage: IV DEXAMETHASONE 20 MG EVERY 21 DAYS
     Route: 042
  2. CYCLOPHOSPHAMIDE [Suspect]
     Active Substance: CYCLOPHOSPHAMIDE
     Indication: Waldenstrom^s macroglobulinaemia
     Dosage: CYCLOPHOSPHAMIDE 300 MG/M2 EVERY 21 DAYS
     Route: 042
  3. RITUXIMAB [Suspect]
     Active Substance: RITUXIMAB
     Indication: Waldenstrom^s macroglobulinaemia
     Dosage: IV RITUXIMAB 375 MG/M2 EVERY 21 DAYS
     Route: 042
  4. RITUXIMAB [Suspect]
     Active Substance: RITUXIMAB
     Dosage: MAINTAINENCE THERAPY WITH SINGLE AGENT RITUXIMAB EVERY 3 MONTHS FOR UPTO 2 YEARS.
  5. DENOSUMAB [Concomitant]
     Active Substance: DENOSUMAB
     Indication: Osteoporosis

REACTIONS (4)
  - Urinary tract infection [Unknown]
  - Neutropenia [Unknown]
  - Oral herpes [Unknown]
  - Anaemia [Unknown]
